FAERS Safety Report 8075497-9 (Version None)
Quarter: 2012Q1

REPORT INFORMATION
  Report Type: 
  Country: None (occurrence: None)
  Receive Date: 20120123
  Receipt Date: 20120110
  Transmission Date: 20120608
  Serious: Yes (Life-Threatening, Hospitalization, Other)
  Sender: FDA-Public Use
  Company Number: AUR-APL-2011-06261

PATIENT
  Age: 54 Year
  Sex: Male

DRUGS (9)
  1. GTN (GLYCERYL TRINITRATE) [Concomitant]
  2. RAMIPRIL [Suspect]
     Indication: HYPERTENSION
     Dosage: ORAL
     Route: 048
     Dates: start: 20110101
  3. RAMIPRIL [Suspect]
     Indication: ACUTE CORONARY SYNDROME
     Dosage: ORAL
     Route: 048
     Dates: start: 20110101
  4. BISOPROLOL FUMARATE [Concomitant]
  5. FUROSEMIDE [Concomitant]
  6. ALL OTHER THERAPEUTIC PRODUCTS (ALL OTHER THERAPEUTIC PRODUCTS) [Concomitant]
  7. METFORMIN HCL [Suspect]
     Indication: DIABETES MELLITUS MANAGEMENT
     Dosage: ORAL
     Route: 048
     Dates: start: 20110101
  8. ASPIRIN [Concomitant]
  9. ATORVASTATIN [Concomitant]

REACTIONS (9)
  - SEPSIS [None]
  - LACTIC ACIDOSIS [None]
  - RENAL FAILURE ACUTE [None]
  - FALL [None]
  - PLATELET COUNT INCREASED [None]
  - HYPOGLYCAEMIA [None]
  - BLOOD BILIRUBIN INCREASED [None]
  - TOXICITY TO VARIOUS AGENTS [None]
  - HYPOTHERMIA [None]
